FAERS Safety Report 9741145 (Version 1)
Quarter: 2013Q4

REPORT INFORMATION
  Report Type: Spontaneous
  Country: US (occurrence: US)
  Receive Date: 20131209
  Receipt Date: 20131209
  Transmission Date: 20140711
  Serious: No
  Sender: FDA-Public Use
  Company Number: US-FOUGERA-2013FO000026

PATIENT
  Age: 59 Year
  Sex: Male

DRUGS (5)
  1. SULFACETAMIDE SODIUM [Suspect]
     Indication: ROSACEA
     Route: 061
  2. METRONIDAZOLE [Suspect]
     Indication: ROSACEA
     Route: 061
  3. FISH OIL [Concomitant]
     Indication: PRODUCT USED FOR UNKNOWN INDICATION
     Route: 048
  4. MULTIVITAMIN [Concomitant]
     Indication: PRODUCT USED FOR UNKNOWN INDICATION
     Route: 048
  5. DOXYCYCLINE [Concomitant]
     Indication: ROSACEA
     Route: 048

REACTIONS (4)
  - Application site pain [Not Recovered/Not Resolved]
  - Drug ineffective [Not Recovered/Not Resolved]
  - Application site swelling [Not Recovered/Not Resolved]
  - Off label use [Not Recovered/Not Resolved]
